FAERS Safety Report 5816216-3 (Version None)
Quarter: 2008Q3

REPORT INFORMATION
  Report Type: 
  Country: None (occurrence: None)
  Receive Date: 20080717
  Receipt Date: 20080717
  Transmission Date: 20090109
  Serious: Yes (Other)
  Sender: FDA-Public Use
  Company Number: None

PATIENT
  Sex: Male
  Weight: 103.8737 kg

DRUGS (1)
  1. VALPROIC ACID [Suspect]
     Dosage: 2 CAPSULE  3 TIMES DAY
     Dates: start: 20070901, end: 20080301

REACTIONS (1)
  - MANIA [None]
